FAERS Safety Report 19271026 (Version 1)
Quarter: 2021Q2

REPORT INFORMATION
  Report Type: Report from Study
  Country: GB (occurrence: GB)
  Receive Date: 20210518
  Receipt Date: 20210518
  Transmission Date: 20210717
  Serious: Yes (Hospitalization)
  Sender: FDA-Public Use
  Company Number: GB-PFIZER INC-2021520518

PATIENT
  Age: 66 Year
  Sex: Female
  Weight: 67.65 kg

DRUGS (10)
  1. DOXORUBICIN HCL [Suspect]
     Active Substance: DOXORUBICIN HYDROCHLORIDE
     Indication: SOFT TISSUE SARCOMA
     Dosage: DAY 1 OF A 21 DAY CYCLE
     Route: 042
     Dates: start: 20160225, end: 20160526
  2. DEXAMETHASONE. [Concomitant]
     Active Substance: DEXAMETHASONE
     Indication: SOFT TISSUE SARCOMA
     Dosage: UNK
     Dates: start: 20160224
  3. DOMPERIDONE [Concomitant]
     Active Substance: DOMPERIDONE
     Indication: SOFT TISSUE SARCOMA
     Dosage: UNK
     Dates: start: 20160414
  4. BLINDED THERAPY [Suspect]
     Active Substance: INVESTIGATIONAL PRODUCT
     Dosage: DAY 1 AND 8 OF A 21 DAY
     Route: 042
     Dates: start: 20160616
  5. BLINDED THERAPY [Suspect]
     Active Substance: INVESTIGATIONAL PRODUCT
     Indication: SOFT TISSUE SARCOMA
     Dosage: DAY 1 AND 8 OF A 21 DAY
     Route: 042
     Dates: start: 20160225, end: 20160602
  6. TINZAPARIN [Concomitant]
     Active Substance: TINZAPARIN
     Indication: PULMONARY EMBOLISM
     Dosage: UNK
     Dates: start: 20160405
  7. CHLORHEXIDINE GLUCONATE. [Concomitant]
     Active Substance: CHLORHEXIDINE GLUCONATE
     Indication: PROPHYLAXIS
     Dosage: UNK
     Dates: start: 20160225
  8. METOCLOPRAMIDE. [Concomitant]
     Active Substance: METOCLOPRAMIDE
     Indication: PROPHYLAXIS
     Dosage: UNK
     Dates: start: 20160225
  9. DEXRAZOXANE. [Concomitant]
     Active Substance: DEXRAZOXANE
     Indication: SOFT TISSUE SARCOMA
     Dosage: UNK
     Route: 042
     Dates: start: 20160414, end: 20160526
  10. LEVOTHYROXINE. [Concomitant]
     Active Substance: LEVOTHYROXINE
     Dosage: UNK
     Dates: start: 2006

REACTIONS (3)
  - Herpes zoster [Recovered/Resolved]
  - Febrile neutropenia [Recovered/Resolved]
  - Febrile neutropenia [Recovered/Resolved]

NARRATIVE: CASE EVENT DATE: 20160605
